FAERS Safety Report 5168587-1 (Version None)
Quarter: 2006Q4

REPORT INFORMATION
  Report Type: 
  Country: None (occurrence: None)
  Receive Date: 20061209
  Receipt Date: 20061016
  Transmission Date: 20070319
  Serious: Yes (Hospitalization)
  Sender: FDA-Public Use
  Company Number: FR-AMGEN-UK197081

PATIENT
  Age: 61 Year
  Sex: Male

DRUGS (6)
  1. KEPIVANCE [Suspect]
     Indication: DRUG USE FOR UNKNOWN INDICATION
     Route: 042
     Dates: start: 20060829, end: 20060831
  2. ATENOLOL [Concomitant]
     Route: 048
  3. ALLOPURINOL [Concomitant]
     Route: 048
  4. ALKERAN [Concomitant]
     Route: 042
     Dates: start: 20060901, end: 20060901
  5. NEXIUM [Concomitant]
     Route: 048
  6. VFEND [Concomitant]
     Route: 048
     Dates: start: 20060831

REACTIONS (3)
  - ERYTHEMA [None]
  - EYELID OEDEMA [None]
  - TOXIC SKIN ERUPTION [None]
